FAERS Safety Report 15727061 (Version 2)
Quarter: 2019Q1

REPORT INFORMATION
  Report Type: Spontaneous
  Country: US (occurrence: US)
  Receive Date: 20181217
  Receipt Date: 20190320
  Transmission Date: 20190417
  Serious: No
  Sender: FDA-Public Use
  Company Number: US-AUROBINDO-AUR-APL-2018-049812

PATIENT

DRUGS (1)
  1. ATOMOXETINE CAPSULES USP 100 MG [Suspect]
     Active Substance: ATOMOXETINE
     Indication: PRODUCT USED FOR UNKNOWN INDICATION
     Dosage: UNK
     Route: 065

REACTIONS (4)
  - Abdominal discomfort [Recovered/Resolved]
  - Product substitution issue [Unknown]
  - Ill-defined disorder [Recovered/Resolved]
  - Drug ineffective [Recovered/Resolved]
